FAERS Safety Report 8132473-5 (Version None)
Quarter: 2012Q1

REPORT INFORMATION
  Report Type: 
  Country: None (occurrence: None)
  Receive Date: 20120103
  Receipt Date: 20110917
  Transmission Date: 20120608
  Serious: No
  Sender: FDA-Public Use
  Company Number: AE-2011-001632

PATIENT
  Age: 56 Year
  Sex: Female
  Weight: 102.0593 kg

DRUGS (9)
  1. DIPHENHYDRAMINE HCL [Concomitant]
  2. INCIVEK [Suspect]
     Dosage: (3 IN 1 D),ORAL
     Route: 048
     Dates: start: 20110819
  3. DIAZEPAM [Concomitant]
  4. FLUVOXAMINE MALEATE [Concomitant]
  5. RIBAVIRIN [Concomitant]
  6. RISPERIDONE [Concomitant]
  7. TOPIRAMATE [Concomitant]
  8. LORTAB [Concomitant]
  9. PEGASYS [Concomitant]

REACTIONS (1)
  - ACCIDENTAL OVERDOSE [None]
